FAERS Safety Report 8210549-1 (Version None)
Quarter: 2012Q1

REPORT INFORMATION
  Report Type: 
  Country: None (occurrence: None)
  Receive Date: 20120314
  Receipt Date: 20111213
  Transmission Date: 20120608
  Serious: No
  Sender: FDA-Public Use
  Company Number: US-ASTRAZENECA-2010SE25594

PATIENT
  Age: 47 Year
  Sex: Male

DRUGS (1)
  1. TOPROL-XL [Suspect]
     Dosage: 100 MG AND 50 MG TABLET (150MG) DAILY
     Route: 048

REACTIONS (4)
  - DIZZINESS [None]
  - DRUG DOSE OMISSION [None]
  - ADVERSE EVENT [None]
  - CLUSTER HEADACHE [None]
